FAERS Safety Report 7209621-4 (Version None)
Quarter: 2011Q1

REPORT INFORMATION
  Report Type: 
  Country: None (occurrence: None)
  Receive Date: 20110103
  Receipt Date: 20110103
  Transmission Date: 20110831
  Serious: Yes (Death, Hospitalization)
  Sender: FDA-Public Use
  Company Number: None

PATIENT
  Age: 73 Year
  Sex: Male
  Weight: 127.3 kg

DRUGS (6)
  1. WARFARIN SODIUM [Suspect]
     Indication: ATRIAL FIBRILLATION
     Dosage: MG EVERY DAY PO
     Route: 048
     Dates: start: 20031021, end: 20100918
  2. WARFARIN SODIUM [Suspect]
     Indication: DEEP VEIN THROMBOSIS
     Dosage: MG EVERY DAY PO
     Route: 048
     Dates: start: 20031021, end: 20100918
  3. WARFARIN SODIUM [Suspect]
     Indication: PULMONARY EMBOLISM
     Dosage: MG EVERY DAY PO
     Route: 048
     Dates: start: 20031021, end: 20100918
  4. ENOXAPARIN SODIUM [Suspect]
     Indication: DEEP VEIN THROMBOSIS
     Dosage: 130 MG BID SQ
     Route: 058
     Dates: start: 20100910, end: 20100918
  5. ENOXAPARIN SODIUM [Suspect]
     Indication: PULMONARY EMBOLISM
     Dosage: 130 MG BID SQ
     Route: 058
     Dates: start: 20100910, end: 20100918
  6. ENOXAPARIN SODIUM [Suspect]
     Indication: ATRIAL FIBRILLATION
     Dosage: 130 MG BID SQ
     Route: 058
     Dates: start: 20100910, end: 20100918

REACTIONS (2)
  - ANAEMIA [None]
  - RETROPERITONEAL HAEMORRHAGE [None]
